FAERS Safety Report 6067993-0 (Version None)
Quarter: 2009Q1

REPORT INFORMATION
  Report Type: 
  Country: None (occurrence: None)
  Receive Date: 20090206
  Receipt Date: 20090128
  Transmission Date: 20090719
  Serious: Yes (Hospitalization)
  Sender: FDA-Public Use
  Company Number: US-JNJFOC-20090107269

PATIENT
  Sex: Female
  Weight: 81.65 kg

DRUGS (10)
  1. FENTANYL TRANSDERMAL SYSTEM [Suspect]
     Dosage: ONE PATCH OF 75UG/HR AND ONE PATCH OF 50 UG/HR
     Route: 062
  2. FENTANYL TRANSDERMAL SYSTEM [Suspect]
     Route: 062
  3. FENTANYL TRANSDERMAL SYSTEM [Suspect]
     Dosage: ONE PATCH OF 75MG/HR, 50UG/HR AND 25UG/HR EACH
     Route: 062
  4. FENTANYL TRANSDERMAL SYSTEM [Suspect]
     Indication: SCOLIOSIS
     Dosage: 100UG/HR AND 50 UG/HR PATCH
     Route: 062
  5. FENTANYL-75 [Suspect]
     Indication: SCOLIOSIS
     Dosage: TWO PATCHES OF 12.5UG/HR
     Route: 062
  6. VERAPAMIL [Concomitant]
     Indication: OESOPHAGEAL DISORDER
     Route: 048
  7. ACIPHEX [Concomitant]
     Indication: OESOPHAGEAL DISORDER
     Route: 048
  8. ESTRADIOL [Concomitant]
     Indication: HORMONE THERAPY
     Route: 048
  9. DARVOCET [Concomitant]
     Indication: PAIN
     Route: 048
  10. LEVOTHROID [Concomitant]
     Indication: THYROID DISORDER
     Route: 048

REACTIONS (7)
  - CYST [None]
  - EXOSTOSIS [None]
  - LIGAMENT RUPTURE [None]
  - OESOPHAGEAL DISORDER [None]
  - PAIN [None]
  - WITHDRAWAL SYNDROME [None]
  - WRONG TECHNIQUE IN DRUG USAGE PROCESS [None]
